FAERS Safety Report 7736498-0 (Version None)
Quarter: 2011Q3

REPORT INFORMATION
  Report Type: 
  Country: None (occurrence: None)
  Receive Date: 20110902
  Receipt Date: 20110824
  Transmission Date: 20111222
  Serious: Yes (Life-Threatening, Hospitalization, Other)
  Sender: FDA-Public Use
  Company Number: 2011MA012546

PATIENT
  Age: 48 Year
  Sex: Male

DRUGS (1)
  1. CARBAMAZEPINE [Suspect]
     Indication: MENTAL DISORDER
     Dosage: 80 G;X1

REACTIONS (11)
  - RESPIRATORY DISORDER [None]
  - HYPOREFLEXIA [None]
  - LOSS OF CONSCIOUSNESS [None]
  - RESPIRATORY FAILURE [None]
  - HYPOTONIA [None]
  - CORNEAL LIGHT REFLEX TEST ABNORMAL [None]
  - HAEMODIALYSIS [None]
  - UNRESPONSIVE TO STIMULI [None]
  - HYPOPNOEA [None]
  - OVERDOSE [None]
  - TOXICITY TO VARIOUS AGENTS [None]
